FAERS Safety Report 4556799-7 (Version None)
Quarter: 2005Q1

REPORT INFORMATION
  Report Type: 
  Country: None (occurrence: None)
  Receive Date: 20050114
  Receipt Date: 20050105
  Transmission Date: 20050727
  Serious: Yes (Hospitalization)
  Sender: FDA-Public Use
  Company Number: 2005-123977-NL

PATIENT
  Age: 81 Year
  Sex: Female

DRUGS (8)
  1. MIRTAZAPINE [Suspect]
     Dosage: 1 DF
     Route: 048
     Dates: start: 20040115, end: 20040723
  2. DIOSMIN [Suspect]
     Dosage: 600 MG BID
     Route: 048
     Dates: start: 20040615, end: 20040723
  3. MANIDIPINE HYDROCHLORIDE [Suspect]
     Dosage: 1 DF QD
     Route: 048
     Dates: start: 20040514, end: 20040723
  4. PRAZEPAM [Concomitant]
  5. GLIBENCLAMIDE [Concomitant]
  6. BISOPROLOL FUMARATE [Concomitant]
  7. URAPIDIL [Concomitant]
  8. ZOPICLONE [Concomitant]

REACTIONS (1)
  - CYTOLYTIC HEPATITIS [None]
